FAERS Safety Report 20179280 (Version 1)
Quarter: 2021Q4

REPORT INFORMATION
  Report Type: Spontaneous
  Country: FR (occurrence: FR)
  Receive Date: 20211214
  Receipt Date: 20211214
  Transmission Date: 20220303
  Serious: Yes (Life-Threatening, Other)
  Sender: FDA-Public Use
  Company Number: None

PATIENT
  Age: 45 Year
  Sex: Female
  Weight: 37 kg

DRUGS (9)
  1. LORAZEPAM [Suspect]
     Active Substance: LORAZEPAM
     Indication: Product used for unknown indication
     Dosage: UNK ( 120 TABLETS OF 1MG)
     Route: 065
     Dates: start: 20210602
  2. ZOLPIDEM [Suspect]
     Active Substance: ZOLPIDEM TARTRATE
     Indication: Product used for unknown indication
     Dosage: UNK (14 TABLETS OF 10 MG )
     Route: 065
     Dates: start: 20210602
  3. ALPRAZOLAM [Suspect]
     Active Substance: ALPRAZOLAM
     Indication: Product used for unknown indication
     Dosage: UNK (25 CP DE 0.25 MG + 28 CP DE )
     Route: 065
     Dates: start: 20210602
  4. ZOPICLONE [Suspect]
     Active Substance: ZOPICLONE
     Indication: Product used for unknown indication
     Dosage: UNK (34 TABLETS OF 7.5 MG)
     Route: 065
     Dates: start: 20210602
  5. HEROIN [Suspect]
     Active Substance: DIAMORPHINE
     Indication: Product used for unknown indication
     Dosage: 200 MILLIGRAM (200 MG/D OF HEROIN FOR 6 WEEKS)
     Route: 045
     Dates: start: 202104
  6. DIAZEPAM [Suspect]
     Active Substance: DIAZEPAM
     Indication: Product used for unknown indication
     Dosage: UNK (40 TABLETS OF 20 MG)
     Route: 065
     Dates: start: 20210602
  7. VALIUM [Suspect]
     Active Substance: DIAZEPAM
     Indication: Product used for unknown indication
     Dosage: UNK (10 ML DE VALIUM 1%0 ML DE VALIUM 1%)
     Route: 065
     Dates: start: 20210602
  8. OXAZEPAM [Suspect]
     Active Substance: OXAZEPAM
     Indication: Product used for unknown indication
     Dosage: UNK (108 TABLETS OF 10 MG)
     Route: 065
     Dates: start: 20210602
  9. LORMETAZEPAM [Suspect]
     Active Substance: LORMETAZEPAM
     Indication: Product used for unknown indication
     Dosage: UNK ( 14 TABLETS OF 10 MG )
     Route: 065
     Dates: start: 20210602

REACTIONS (6)
  - Intentional product misuse [Recovering/Resolving]
  - Drug abuse [Recovering/Resolving]
  - Coma [Recovered/Resolved]
  - Bradycardia [Recovered/Resolved]
  - Hypotension [Recovered/Resolved]
  - Miosis [Recovered/Resolved]

NARRATIVE: CASE EVENT DATE: 20210602
